FAERS Safety Report 9621752 (Version 1)
Quarter: 2013Q4

REPORT INFORMATION
  Report Type: Spontaneous
  Country: US (occurrence: US)
  Receive Date: 20131015
  Receipt Date: 20131015
  Transmission Date: 20140711
  Serious: Yes (Other)
  Sender: FDA-Public Use
  Company Number: US-NAPPMUNDI-USA-2012-0084986

PATIENT
  Sex: Female

DRUGS (2)
  1. BUTRANS [Suspect]
     Indication: PRODUCT USED FOR UNKNOWN INDICATION
     Dosage: UNK
     Dates: end: 201203
  2. UNSPECIFIED [Suspect]
     Indication: SUBSTANCE ABUSE

REACTIONS (3)
  - Substance abuse [Unknown]
  - Anger [Unknown]
  - Feeling abnormal [Unknown]
